FAERS Safety Report 16885298 (Version 2)
Quarter: 2019Q4

REPORT INFORMATION
  Report Type: Spontaneous
  Country: US (occurrence: US)
  Receive Date: 20191004
  Receipt Date: 20191011
  Transmission Date: 20200122
  Serious: No
  Sender: FDA-Public Use
  Company Number: US-BAYER-2019-177584

PATIENT

DRUGS (15)
  1. KEFLEX [Suspect]
     Active Substance: CEPHALEXIN
  2. LEXAPRO [Suspect]
     Active Substance: ESCITALOPRAM OXALATE
  3. IBUPROFEN. [Suspect]
     Active Substance: IBUPROFEN
  4. FLAGYL [Suspect]
     Active Substance: METRONIDAZOLE\METRONIDAZOLE HYDROCHLORIDE
  5. BAYER LOW DOSE [Suspect]
     Active Substance: ASPIRIN
  6. BIAXIN [Suspect]
     Active Substance: CLARITHROMYCIN
  7. ALEVE [Suspect]
     Active Substance: NAPROXEN SODIUM
  8. SINGULA [Suspect]
     Active Substance: MONTELUKAST SODIUM
  9. LISINOPRIL. [Suspect]
     Active Substance: LISINOPRIL
  10. MACRODANTIN [Suspect]
     Active Substance: NITROFURANTOIN
  11. CEFDINIR. [Suspect]
     Active Substance: CEFDINIR
  12. PREGABALIN. [Suspect]
     Active Substance: PREGABALIN
     Indication: PAIN
     Dosage: 1 DF, QID
     Route: 048
  13. PREDNISON [Suspect]
     Active Substance: PREDNISONE
  14. PSEUDOEPHEDRINE. [Suspect]
     Active Substance: PSEUDOEPHEDRINE HYDROCHLORIDE
  15. AMOXICILLIN. [Suspect]
     Active Substance: AMOXICILLIN

REACTIONS (2)
  - Aspirin-exacerbated respiratory disease [Unknown]
  - Drug hypersensitivity [Unknown]
